FAERS Safety Report 8608717-X (Version None)
Quarter: 2012Q3

REPORT INFORMATION
  Report Type: 
  Country: None (occurrence: None)
  Receive Date: 20120821
  Receipt Date: 20111028
  Transmission Date: 20120928
  Serious: No
  Sender: FDA-Public Use
  Company Number: US-MYLANLABS-2011S1022330

PATIENT
  Age: 80 Year
  Sex: Female

DRUGS (4)
  1. SYNTHROID [Concomitant]
  2. DIGOXIN [Concomitant]
  3. ATENOLOL [Concomitant]
  4. LISINOPRIL [Suspect]
     Indication: BLOOD PRESSURE

REACTIONS (2)
  - THROAT IRRITATION [None]
  - COUGH [None]
